FAERS Safety Report 9223612 (Version 1)
Quarter: 2013Q2

REPORT INFORMATION
  Report Type: Spontaneous
  Country: US (occurrence: US)
  Receive Date: 20130410
  Receipt Date: 20130410
  Transmission Date: 20140414
  Serious: Yes (Other)
  Sender: FDA-Public Use
  Company Number: US-ELI_LILLY_AND_COMPANY-US201205005082

PATIENT
  Age: 53 Year
  Sex: Female

DRUGS (8)
  1. FORTEO [Suspect]
     Indication: OSTEOPOROSIS
     Dosage: 20 UG, QD
     Dates: start: 201111
  2. FORTEO [Suspect]
     Dosage: 20 UG, QD
     Dates: end: 201303
  3. NORCO [Concomitant]
     Indication: FIBROMYALGIA
  4. VALIUM [Concomitant]
     Indication: SLEEP DISORDER
  5. CALCIUM [Concomitant]
  6. VITAMIN D3 [Concomitant]
  7. FLAXSEED OIL [Concomitant]
  8. COD LIVER OIL [Concomitant]
     Dosage: UNK

REACTIONS (4)
  - Breast cancer [Unknown]
  - Palpitations [Unknown]
  - Dizziness [Unknown]
  - Muscle spasms [Unknown]
